FAERS Safety Report 16666563 (Version 2)
Quarter: 2019Q3

REPORT INFORMATION
  Report Type: Spontaneous
  Country: JP (occurrence: JP)
  Receive Date: 20190805
  Receipt Date: 20190814
  Transmission Date: 20191004
  Serious: Yes (Other)
  Sender: FDA-Public Use
  Company Number: JP-009507513-1907JPN003752J

PATIENT
  Age: 3 Decade
  Sex: Male

DRUGS (2)
  1. REMERON [Suspect]
     Active Substance: MIRTAZAPINE
     Dosage: 525 MILLIGRAM
     Route: 048
  2. VENLAFAXINE HYDROCHLORIDE. [Concomitant]
     Active Substance: VENLAFAXINE HYDROCHLORIDE
     Dosage: 5250 MILLIGRAM
     Route: 048

REACTIONS (1)
  - Intentional overdose [Unknown]
